FAERS Safety Report 4464810-7 (Version None)
Quarter: 2004Q4

REPORT INFORMATION
  Report Type: 
  Country: None (occurrence: None)
  Receive Date: 20041004
  Receipt Date: 20030717
  Transmission Date: 20050328
  Serious: No
  Sender: FDA-Public Use
  Company Number: US-GLAXOSMITHKLINE-A0417308A

PATIENT
  Age: 69 Year
  Sex: Female

DRUGS (4)
  1. COREG [Suspect]
     Indication: HYPERTENSION
     Dosage: 25MG PER DAY
     Route: 048
     Dates: start: 20030601
  2. LASIX [Concomitant]
     Route: 065
  3. COZAAR [Concomitant]
  4. INSULIN [Concomitant]

REACTIONS (4)
  - DIZZINESS [None]
  - GLOSSODYNIA [None]
  - HEART RATE DECREASED [None]
  - OEDEMA PERIPHERAL [None]
